FAERS Safety Report 20236235 (Version 2)
Quarter: 2022Q1

REPORT INFORMATION
  Report Type: Spontaneous
  Country: US (occurrence: US)
  Receive Date: 20211228
  Receipt Date: 20220120
  Transmission Date: 20220424
  Serious: No
  Sender: FDA-Public Use
  Company Number: US-PFIZER INC-202101698941

PATIENT
  Age: 11 Year
  Sex: Male
  Weight: 24.95 kg

DRUGS (2)
  1. GENOTROPIN [Suspect]
     Active Substance: SOMATROPIN
     Indication: Growth hormone deficiency
     Dosage: 1.3MG ONCE AT NIGHT
     Dates: start: 202103
  2. MELATONIN [Concomitant]
     Active Substance: MELATONIN
     Indication: Sleep disorder
     Dosage: OCCASIONALLY AT NIGHT

REACTIONS (4)
  - Device use error [Unknown]
  - Device issue [Unknown]
  - Poor quality device used [Unknown]
  - Drug dose omission by device [Unknown]
